FAERS Safety Report 9192719 (Version 1)
Quarter: 2013Q1

REPORT INFORMATION
  Report Type: Spontaneous
  Country: IT (occurrence: None)
  Receive Date: 20130325
  Receipt Date: 20130325
  Transmission Date: 20140127
  Serious: Yes (Hospitalization)
  Sender: FDA-Public Use
  Company Number: 2013AP003717

PATIENT
  Age: 64 Year
  Sex: Male

DRUGS (6)
  1. CLARITHROMYCIN (CLARITHROMYCIN) [Suspect]
     Indication: BRONCHITIS
     Route: 048
     Dates: start: 20130308, end: 20130310
  2. FOSAVANCE (FOSAVANCE) [Concomitant]
  3. COTAREG (CO-DIOVAN) [Concomitant]
  4. AGGRENOX (ASASANTIN) [Concomitant]
  5. RANITIDINE (RANITIDINE) [Concomitant]
  6. AUGMENTIN (AMOXICILLIN W/CLAVULANATE POTASSIUM) [Concomitant]

REACTIONS (1)
  - Tongue oedema [None]
